FAERS Safety Report 12925073 (Version 1)
Quarter: 2016Q4

REPORT INFORMATION
  Report Type: Spontaneous
  Country: US (occurrence: US)
  Receive Date: 20161108
  Receipt Date: 20161108
  Transmission Date: 20170207
  Serious: Yes (Death, Hospitalization)
  Sender: FDA-Public Use
  Company Number: US-ALLERGAN-1674859US

PATIENT
  Age: 76 Year
  Sex: Male

DRUGS (1)
  1. VIBERZI [Suspect]
     Active Substance: ELUXADOLINE
     Indication: DIARRHOEA
     Dosage: 75 MG, QD
     Route: 048
     Dates: start: 20161011, end: 20161014

REACTIONS (7)
  - Off label use [Unknown]
  - Escherichia bacteraemia [Unknown]
  - Incorrect dose administered [Unknown]
  - Nausea [Unknown]
  - Septic shock [Fatal]
  - Renal disorder [Unknown]
  - Vomiting [Unknown]

NARRATIVE: CASE EVENT DATE: 20161011
